FAERS Safety Report 9860826 (Version 1)
Quarter: 2014Q1

REPORT INFORMATION
  Report Type: Spontaneous
  Country: US (occurrence: US)
  Receive Date: 20140202
  Receipt Date: 20140202
  Transmission Date: 20141002
  Serious: No
  Sender: FDA-Public Use
  Company Number: US-ALLERGAN-1301651US

PATIENT
  Age: 58 Year
  Sex: Female

DRUGS (4)
  1. BOTOX COSMETIC [Suspect]
     Indication: SKIN WRINKLING
     Dosage: 2 UNITS, SINGLE
     Route: 030
     Dates: start: 20121126, end: 20121126
  2. BOTOX COSMETIC [Suspect]
     Indication: SKIN WRINKLING
     Dosage: 53 UNITS, SINGLE
     Route: 030
     Dates: start: 20120619, end: 20120619
  3. BOTOX COSMETIC [Suspect]
     Indication: SKIN WRINKLING
  4. DITROPAN [Concomitant]
     Indication: HYPERTONIC BLADDER
     Dosage: UNK

REACTIONS (3)
  - Incontinence [Recovered/Resolved]
  - Off label use [Unknown]
  - Incontinence [Recovered/Resolved]
